FAERS Safety Report 4519220-0 (Version None)
Quarter: 2004Q4

REPORT INFORMATION
  Report Type: 
  Country: None (occurrence: None)
  Receive Date: 20041206
  Receipt Date: 20041011
  Transmission Date: 20050328
  Serious: Yes (Life-Threatening, Hospitalization, Disabling, Other)
  Sender: FDA-Public Use
  Company Number: US-MERCK-0410USA01683

PATIENT
  Age: 84 Year
  Sex: Female

DRUGS (23)
  1. VIOXX [Suspect]
     Indication: OSTEOARTHRITIS
     Route: 048
  2. VIOXX [Suspect]
     Route: 048
  3. VIOXX [Suspect]
     Indication: NECROSIS
     Route: 048
  4. VIOXX [Suspect]
     Route: 048
  5. COZAAR [Concomitant]
     Route: 048
  6. EVISTA [Concomitant]
     Route: 048
  7. NORVASC [Concomitant]
     Route: 048
  8. ASPIRIN [Concomitant]
     Route: 048
  9. MIACALCIN [Concomitant]
     Route: 065
  10. MIACALCIN [Concomitant]
     Route: 065
  11. CELEBREX [Concomitant]
     Route: 048
  12. HYZAAR [Concomitant]
     Route: 048
  13. PREMARIN [Concomitant]
     Route: 065
  14. PERCOCET [Concomitant]
     Route: 065
  15. GLUCOSAMINE [Concomitant]
     Route: 065
  16. CHONDROITIN SULFATE SODIUM [Concomitant]
     Route: 065
  17. LINSEED OIL [Concomitant]
     Route: 065
  18. VITAMINS (UNSPECIFIED) [Concomitant]
     Route: 065
  19. VITAMIN B (UNSPECIFIED) [Concomitant]
     Route: 065
  20. ASCORBIC ACID [Concomitant]
     Route: 065
  21. VITAMIN E [Concomitant]
     Route: 065
  22. CALCIUM (UNSPECIFIED) [Concomitant]
     Route: 065
  23. VITAMIN D (UNSPECIFIED) [Concomitant]
     Route: 065

REACTIONS (9)
  - CHEST PAIN [None]
  - DYSPNOEA [None]
  - HELICOBACTER INFECTION [None]
  - JOINT SWELLING [None]
  - NAUSEA [None]
  - OEDEMA [None]
  - PULMONARY EMBOLISM [None]
  - TACHYCARDIA [None]
  - TACHYPNOEA [None]
